FAERS Safety Report 8571302-2 (Version None)
Quarter: 2012Q3

REPORT INFORMATION
  Report Type: 
  Country: None (occurrence: None)
  Receive Date: 20120806
  Receipt Date: 20120803
  Transmission Date: 20120928
  Serious: Yes (Other)
  Sender: FDA-Public Use
  Company Number: FR-ABBOTT-12P-056-0889047-00

PATIENT
  Sex: Male
  Weight: 67 kg

DRUGS (3)
  1. METHOTREXATE [Concomitant]
     Indication: RHEUMATOID ARTHRITIS
     Route: 058
     Dates: start: 20001101, end: 20111101
  2. HUMIRA [Suspect]
     Indication: RHEUMATOID ARTHRITIS
     Route: 058
     Dates: start: 20060901, end: 20111101
  3. ACETAMINOPHEN [Concomitant]
     Indication: RHEUMATOID ARTHRITIS
     Route: 048
     Dates: start: 20000101

REACTIONS (5)
  - MONOPARESIS [None]
  - B-CELL LYMPHOMA STAGE IV [None]
  - METASTASES TO NERVOUS SYSTEM [None]
  - DIPLEGIA [None]
  - LUNG NEOPLASM [None]
